FAERS Safety Report 5941010-2 (Version None)
Quarter: 2008Q4

REPORT INFORMATION
  Report Type: 
  Country: None (occurrence: None)
  Receive Date: 20081104
  Receipt Date: 20081029
  Transmission Date: 20090506
  Serious: Yes (Other)
  Sender: FDA-Public Use
  Company Number: PHBS2008JP06177

PATIENT
  Age: 4 Year
  Sex: Male

DRUGS (4)
  1. CYCLOSPORINE [Suspect]
     Indication: NEPHROTIC SYNDROME
     Dosage: 1.8 MG/KG
  2. PREDNISOLONE [Concomitant]
     Indication: FOCAL SEGMENTAL GLOMERULOSCLEROSIS
     Dosage: 1.5 MG/KG PER DAY
  3. PREDNISOLONE [Concomitant]
     Indication: NEPHROTIC SYNDROME
     Dosage: 0.5 MG/KG
  4. METHYLPREDNISOLONE 16MG TAB [Concomitant]
     Indication: FOCAL SEGMENTAL GLOMERULOSCLEROSIS

REACTIONS (4)
  - BLOOD IMMUNOGLOBULIN G DECREASED [None]
  - CYTOMEGALOVIRUS INFECTION [None]
  - FOCAL SEGMENTAL GLOMERULOSCLEROSIS [None]
  - PROTEINURIA [None]
